FAERS Safety Report 4937165-9 (Version None)
Quarter: 2006Q1

REPORT INFORMATION
  Report Type: 
  Country: None (occurrence: None)
  Receive Date: 20060307
  Receipt Date: 20060307
  Transmission Date: 20060701
  Serious: Yes (Hospitalization)
  Sender: FDA-Public Use
  Company Number: None

PATIENT
  Sex: Male
  Weight: 81.1939 kg

DRUGS (8)
  1. OXALIPLATIN  130MG/M2 = 271MG [Suspect]
     Indication: RECURRENT CANCER
     Dosage: 271 MG ONCE EVERY 21 DAYS IV
     Route: 042
     Dates: start: 20060222
  2. OXALIPLATIN  130MG/M2 = 271MG [Suspect]
     Indication: TONSIL CANCER
     Dosage: 271 MG ONCE EVERY 21 DAYS IV
     Route: 042
     Dates: start: 20060222
  3. DOCETAXEL  60MG/M2 = 125 MG [Suspect]
     Indication: RECURRENT CANCER
     Dosage: 125 MG ONCE EVERY 21 DAYS IV
     Route: 042
     Dates: start: 20060222
  4. DOCETAXEL  60MG/M2 = 125 MG [Suspect]
     Indication: TONSIL CANCER
     Dosage: 125 MG ONCE EVERY 21 DAYS IV
     Route: 042
     Dates: start: 20060222
  5. APPREPITANT [Concomitant]
  6. DEXAMETHASONE [Concomitant]
  7. ONDANSETRON [Concomitant]
  8. GABAPENTIN [Concomitant]

REACTIONS (2)
  - FEBRILE NEUTROPENIA [None]
  - ORAL CANDIDIASIS [None]
